FAERS Safety Report 12398273 (Version 4)
Quarter: 2016Q4

REPORT INFORMATION
  Report Type: Report from Study
  Country: GB (occurrence: GB)
  Receive Date: 20160524
  Receipt Date: 20161109
  Transmission Date: 20170207
  Serious: Yes (Life-Threatening, Hospitalization, Other)
  Sender: FDA-Public Use
  Company Number: PHFR2016GB004197

PATIENT
  Age: 29 Year
  Sex: Female
  Weight: 45 kg

DRUGS (6)
  1. FOSTAIR [Concomitant]
     Active Substance: BECLOMETHASONE\FORMOTEROL
     Indication: CYSTIC FIBROSIS LUNG
     Dosage: UNK UNK, BID
     Route: 055
  2. TOBI PODHALER [Suspect]
     Active Substance: TOBRAMYCIN
     Indication: CYSTIC FIBROSIS
     Dosage: 28 MG, UNK
     Route: 065
     Dates: start: 20140321
  3. TIOTROPIUM [Concomitant]
     Active Substance: TIOTROPIUM
     Indication: CYSTIC FIBROSIS LUNG
     Dosage: 5 UG, UNK
     Route: 055
  4. QVAR [Concomitant]
     Active Substance: BECLOMETHASONE DIPROPIONATE
     Indication: CYSTIC FIBROSIS LUNG
     Dosage: 400 UG, UNK
     Route: 055
  5. COLOMYCIN [Concomitant]
     Active Substance: COLISTIN
     Indication: CYSTIC FIBROSIS LUNG
     Dosage: 2 MILION UNIT, BID
     Route: 055
  6. TOBI PODHALER [Suspect]
     Active Substance: TOBRAMYCIN
     Indication: BACTERIAL DISEASE CARRIER
     Dosage: 4 DF, BID
     Route: 055
     Dates: end: 201604

REACTIONS (2)
  - Infective pulmonary exacerbation of cystic fibrosis [Not Recovered/Not Resolved]
  - Lower respiratory tract infection [Unknown]

NARRATIVE: CASE EVENT DATE: 20160528
